FAERS Safety Report 15432702 (Version 6)
Quarter: 2018Q4

REPORT INFORMATION
  Report Type: Report from Study
  Country: PL (occurrence: PL)
  Receive Date: 20180927
  Receipt Date: 20181214
  Transmission Date: 20190204
  Serious: Yes (Hospitalization, Other)
  Sender: FDA-Public Use
  Company Number: PL-AUROBINDO-AUR-APL-2018-047426

PATIENT
  Age: 68 Year
  Sex: Female

DRUGS (13)
  1. METFORMIN HYDROCHLORIDE. [Suspect]
     Active Substance: METFORMIN HYDROCHLORIDE
     Indication: TYPE 2 DIABETES MELLITUS
     Dosage: 3 G, QD
     Route: 048
  2. DICLOFENAC [Concomitant]
     Active Substance: DICLOFENAC
     Indication: MUSCULOSKELETAL PAIN
     Dosage: 150 MG, QD
     Route: 065
  3. AMOXICILLIN. [Suspect]
     Active Substance: AMOXICILLIN
     Indication: PHARYNGITIS
     Dosage: 2 G, QD
     Route: 065
  4. INSULIN W/ISOPHANE INSULIN [Concomitant]
     Dosage: 2 UNK, (30/70 IN DOSES OF 32 U AND 18 U), BID
     Route: 065
  5. ASPIRIN                            /00002701/ [Concomitant]
     Active Substance: ASPIRIN
     Indication: DIABETES MELLITUS
     Dosage: 75 MG, QD
     Route: 065
  6. ROSUVASTATIN. [Concomitant]
     Active Substance: ROSUVASTATIN
     Indication: DIABETES MELLITUS
     Dosage: 10 MG, QD
     Route: 065
  7. DICLOFENAC [Concomitant]
     Active Substance: DICLOFENAC
     Indication: ARTHRALGIA
  8. INSULIN W/ISOPHANE INSULIN [Concomitant]
     Dosage: 18 INTERNATIONAL UNIT, ONCE A DAY
     Route: 065
  9. GLUCOSE [Concomitant]
     Active Substance: DEXTROSE
     Indication: PRODUCT USED FOR UNKNOWN INDICATION
     Dosage: 4 L, UNK (WITH SHORT-ACTING INSULIN (GLYCAEMIA CHECKED AT ONE HOUR INTERVALS)
     Route: 042
  10. INSULIN                            /01223201/ [Concomitant]
     Indication: TYPE 2 DIABETES MELLITUS
     Dosage: 64 INTERNATIONAL UNIT, DAILY
     Route: 065
  11. INSULIN                            /01223201/ [Concomitant]
     Dosage: 36 INTERNATIONAL UNIT, DAILY
     Route: 065
  12. INSULIN W/ISOPHANE INSULIN [Concomitant]
     Indication: DIABETES MELLITUS
     Dosage: 32 INTERNATIONAL UNIT, ONCE A DAY
     Route: 065
  13. INSULIN                            /01223201/ [Concomitant]
     Dosage: 32 UNITS, 18 UNITS
     Route: 065

REACTIONS (15)
  - Abdominal pain [Recovered/Resolved]
  - Renal failure [Recovered/Resolved]
  - Asthenia [Recovered/Resolved]
  - Nausea [Recovered/Resolved]
  - Amylase increased [Recovered/Resolved]
  - Lactic acidosis [Recovered/Resolved]
  - Vomiting [Recovered/Resolved]
  - Contraindicated product administered [Unknown]
  - Metabolic acidosis [Recovering/Resolving]
  - Anuria [Recovering/Resolving]
  - Blood potassium increased [Recovered/Resolved]
  - Renal cyst [Recovering/Resolving]
  - Chest pain [Recovering/Resolving]
  - Blood pressure decreased [Recovering/Resolving]
  - Overdose [Unknown]
